FAERS Safety Report 9123968 (Version 4)
Quarter: 2013Q4

REPORT INFORMATION
  Report Type: Spontaneous
  Country: US (occurrence: US)
  Receive Date: 20130227
  Receipt Date: 20131209
  Transmission Date: 20140711
  Serious: Yes (Hospitalization, Other)
  Sender: FDA-Public Use
  Company Number: US-009507513-1302USA012762

PATIENT
  Sex: Female

DRUGS (4)
  1. FOSAMAX [Suspect]
     Indication: OSTEOPOROSIS
     Dosage: 70 MG, QW
     Route: 048
     Dates: start: 200109, end: 200707
  2. ALENDRONATE SODIUM [Suspect]
     Indication: OSTEOPOROSIS
     Dosage: 70 MG, QW
     Route: 048
     Dates: start: 200708, end: 20100212
  3. PRILOSEC [Concomitant]
     Indication: GASTROOESOPHAGEAL REFLUX DISEASE
     Dosage: UNK
     Dates: start: 1988
  4. VITAMINS (UNSPECIFIED) [Concomitant]
     Dosage: UNK
     Dates: start: 2000

REACTIONS (45)
  - Femur fracture [Unknown]
  - Open reduction of fracture [Unknown]
  - Femur fracture [Recovering/Resolving]
  - Intramedullary rod insertion [Unknown]
  - Atrial fibrillation [Unknown]
  - Aspiration [Unknown]
  - Renal failure acute [Recovering/Resolving]
  - Unresponsive to stimuli [Unknown]
  - Cholecystectomy [Unknown]
  - Femur fracture [Unknown]
  - Femur fracture [Unknown]
  - Leukocytosis [Unknown]
  - Dental care [Unknown]
  - Impaired healing [Unknown]
  - Tongue tie operation [Unknown]
  - Diastolic dysfunction [Unknown]
  - Fall [Unknown]
  - Upper gastrointestinal haemorrhage [Unknown]
  - Granulocytosis [Not Recovered/Not Resolved]
  - Hypertension [Unknown]
  - Hypercholesterolaemia [Unknown]
  - Mitral valve prolapse [Unknown]
  - Incisional hernia repair [Unknown]
  - Anaemia [Unknown]
  - Procedural hypotension [Recovered/Resolved]
  - Contusion [Unknown]
  - Balance disorder [Unknown]
  - Pulmonary congestion [Unknown]
  - Hysterectomy [Unknown]
  - Haematocrit decreased [Unknown]
  - Haemoglobin decreased [Unknown]
  - Laceration [Unknown]
  - Swelling [Unknown]
  - Kyphoscoliosis [Unknown]
  - Arthritis [Unknown]
  - Sciatica [Recovering/Resolving]
  - Osteoarthritis [Unknown]
  - Spinal osteoarthritis [Unknown]
  - Iliotibial band syndrome [Recovering/Resolving]
  - Bursitis [Recovering/Resolving]
  - Gastric polyps [Unknown]
  - Procedural complication [Unknown]
  - Diverticulitis [Unknown]
  - Local swelling [Unknown]
  - Pain in extremity [Unknown]
